FAERS Safety Report 7017770-9 (Version None)
Quarter: 2010Q3

REPORT INFORMATION
  Report Type: 
  Country: None (occurrence: None)
  Receive Date: 20100928
  Receipt Date: 20100915
  Transmission Date: 20110219
  Serious: Yes (Other)
  Sender: FDA-Public Use
  Company Number: US-ELI_LILLY_AND_COMPANY-US201005004901

PATIENT
  Sex: Male
  Weight: 30.9 kg

DRUGS (2)
  1. HUMATROPE [Suspect]
     Indication: GROWTH RETARDATION
     Dosage: 1.1 MG, DAILY (1/D)
     Route: 058
     Dates: start: 20100501, end: 20100517
  2. TOPAMAX [Concomitant]
     Dosage: 50 MG, DAILY (1/D)

REACTIONS (14)
  - ABDOMINAL DISTENSION [None]
  - APNOEA [None]
  - CONVULSION [None]
  - EYE SWELLING [None]
  - LETHARGY [None]
  - MALAISE [None]
  - NASAL CONGESTION [None]
  - OEDEMA PERIPHERAL [None]
  - OROPHARYNGEAL PAIN [None]
  - PNEUMONIA VIRAL [None]
  - RESPIRATORY RATE INCREASED [None]
  - SNORING [None]
  - SOMNOLENCE [None]
  - SWELLING FACE [None]
